FAERS Safety Report 24276703 (Version 3)
Quarter: 2024Q4

REPORT INFORMATION
  Report Type: Report from Study
  Country: CO (occurrence: CO)
  Receive Date: 20240903
  Receipt Date: 20241025
  Transmission Date: 20250114
  Serious: Yes (Hospitalization, Other)
  Sender: UCB
  Company Number: CO-UCBSA-2024044716

PATIENT
  Age: 25 Year
  Sex: Female

DRUGS (6)
  1. CERTOLIZUMAB PEGOL [Suspect]
     Active Substance: CERTOLIZUMAB PEGOL
     Indication: Ankylosing spondylitis
     Dosage: 400 MILLIGRAM, EV 4 WEEKS (400 MG EVERY MONTH), SOLUTION FOR INJECTION
     Route: 058
     Dates: start: 20221231
  2. CEPHALOTHIN [Suspect]
     Active Substance: CEPHALOTHIN
     Indication: Hip arthroplasty
     Dosage: UNK
     Dates: start: 20230307, end: 20230310
  3. CEPHALOTHIN [Suspect]
     Active Substance: CEPHALOTHIN
     Dosage: 1 GRAM
     Route: 042
     Dates: start: 20230907, end: 20230911
  4. ACETAMINOPHEN [Concomitant]
     Active Substance: ACETAMINOPHEN
     Indication: Product used for unknown indication
     Dosage: UNK, EVERY 8 HOURS (TID)
     Dates: start: 2023
  5. ACETAMINOPHEN [Concomitant]
     Active Substance: ACETAMINOPHEN
     Dosage: UNK
     Dates: start: 20230307, end: 20230310
  6. ACETAMINOPHEN [Concomitant]
     Active Substance: ACETAMINOPHEN
     Dosage: UNK
     Dates: start: 20230907, end: 20230911

REACTIONS (7)
  - Hip arthroplasty [Recovered/Resolved]
  - Accident [Recovered/Resolved]
  - Joint dislocation [Recovered/Resolved]
  - Dysmetria [Not Recovered/Not Resolved]
  - Hip surgery [Recovered/Resolved]
  - Gait disturbance [Not Recovered/Not Resolved]
  - Off label use [Unknown]

NARRATIVE: CASE EVENT DATE: 20221231
